FAERS Safety Report 7318799-3 (Version None)
Quarter: 2011Q1

REPORT INFORMATION
  Report Type: 
  Country: None (occurrence: None)
  Receive Date: 20110228
  Receipt Date: 20100610
  Transmission Date: 20110831
  Serious: No
  Sender: FDA-Public Use
  Company Number: A0866446A

PATIENT
  Sex: Male

DRUGS (2)
  1. IMITREX [Suspect]
  2. IMITREX [Suspect]
     Dosage: 6MG AS REQUIRED
     Route: 058

REACTIONS (2)
  - DRUG INTOLERANCE [None]
  - ADVERSE REACTION [None]
